FAERS Safety Report 5282082-0 (Version None)
Quarter: 2007Q1

REPORT INFORMATION
  Report Type: 
  Country: None (occurrence: None)
  Receive Date: 20070330
  Receipt Date: 20070319
  Transmission Date: 20070707
  Serious: Yes (Hospitalization, Other)
  Sender: FDA-Public Use
  Company Number: US-PFIZER INC-001-0902-M0200005

PATIENT
  Sex: Female
  Weight: 81.6 kg

DRUGS (4)
  1. NARDIL [Suspect]
     Indication: DEPRESSION
     Route: 048
  2. NARDIL [Suspect]
     Indication: PANIC ATTACK
  3. NARDIL [Suspect]
     Indication: ANXIETY
  4. XANAX [Concomitant]

REACTIONS (5)
  - DRUG DEPENDENCE [None]
  - HYPERTENSION [None]
  - MANIA [None]
  - NERVOUSNESS [None]
  - WEIGHT INCREASED [None]
